FAERS Safety Report 6335217-2 (Version None)
Quarter: 2009Q3

REPORT INFORMATION
  Report Type: 
  Country: None (occurrence: None)
  Receive Date: 20090827
  Receipt Date: 20090818
  Transmission Date: 20100115
  Serious: Yes (Other)
  Sender: FDA-Public Use
  Company Number: 2009AL005444

PATIENT
  Age: 15 Year
  Sex: Female

DRUGS (1)
  1. MIRTAZAPINE           (AMIDE) [Suspect]
     Indication: DEPRESSION
     Dosage: 22.5 MG;QD

REACTIONS (9)
  - AGGRESSION [None]
  - DELUSION OF GRANDEUR [None]
  - ENERGY INCREASED [None]
  - GENERAL PHYSICAL HEALTH DETERIORATION [None]
  - IRRITABILITY [None]
  - LOGORRHOEA [None]
  - MANIA [None]
  - PSYCHOMOTOR HYPERACTIVITY [None]
  - SLEEP DISORDER [None]
